FAERS Safety Report 5634339-9 (Version None)
Quarter: 2008Q1

REPORT INFORMATION
  Report Type: 
  Country: None (occurrence: None)
  Receive Date: 20080222
  Receipt Date: 20080122
  Transmission Date: 20080703
  Serious: No
  Sender: FDA-Public Use
  Company Number: US-BAYER-200812381NA

PATIENT
  Age: 18 Year
  Sex: Female

DRUGS (2)
  1. YAZ [Suspect]
     Route: 048
  2. IBUPROFEN [Concomitant]
     Indication: PAIN

REACTIONS (3)
  - ARTHRALGIA [None]
  - JOINT SPRAIN [None]
  - JOINT SWELLING [None]
